FAERS Safety Report 19360726 (Version 1)
Quarter: 2021Q2

REPORT INFORMATION
  Report Type: Report from Study
  Country: None (occurrence: US)
  Receive Date: 20210602
  Receipt Date: 20210602
  Transmission Date: 20210717
  Serious: No
  Sender: FDA-Public Use
  Company Number: US-MDD US OPERATIONS-USW202007-001446

PATIENT
  Age: 81 Year
  Sex: Male
  Weight: 90.71 kg

DRUGS (4)
  1. CARBIDOPA/LEVODOPA 25/100 [Concomitant]
     Active Substance: CARBIDOPA\LEVODOPA
     Dosage: NOT PROVIDED
  2. APOKYN [Suspect]
     Active Substance: APOMORPHINE HYDROCHLORIDE
     Indication: PARKINSON^S DISEASE
     Route: 058
     Dates: start: 20200710
  3. CARBIDOPA/LEVODOPA CR [Concomitant]
     Dosage: NOT PROVIDED
  4. APOKYN [Suspect]
     Active Substance: APOMORPHINE HYDROCHLORIDE
     Route: 058
     Dates: start: 20200715

REACTIONS (3)
  - Blood pressure decreased [Recovered/Resolved]
  - Heart rate decreased [Recovered/Resolved]
  - Dizziness [Recovered/Resolved]

NARRATIVE: CASE EVENT DATE: 20200710
